FAERS Safety Report 6624068-7 (Version None)
Quarter: 2010Q1

REPORT INFORMATION
  Report Type: 
  Country: None (occurrence: None)
  Receive Date: 20100310
  Receipt Date: 20100228
  Transmission Date: 20100710
  Serious: Yes (Death, Hospitalization)
  Sender: FDA-Public Use
  Company Number: US-ROCHE-655793

PATIENT
  Sex: Female
  Weight: 93.4 kg

DRUGS (7)
  1. CAPECITABINE [Suspect]
     Indication: GASTROINTESTINAL CARCINOMA
     Route: 048
     Dates: start: 20090813, end: 20091111
  2. LOMOTIL [Concomitant]
     Indication: DIARRHOEA
     Dosage: FREQUENCY: PRN
     Route: 048
  3. RANITIDINE [Concomitant]
     Indication: NAUSEA
     Route: 048
  4. ALLOPURINOL [Concomitant]
     Indication: GOUT
     Route: 048
  5. LISINOPRIL AND HYDROCHLOROTHIAZIDE [Concomitant]
     Indication: BLOOD PRESSURE INCREASED
     Dosage: DRUG NAME: LISINOPRIL/HCTZ
     Route: 048
  6. LOVASTATIN [Concomitant]
     Route: 048
  7. PROCHLORPERAZINE [Concomitant]
     Indication: NAUSEA
     Dosage: FREQUENCY: PRN
     Route: 048

REACTIONS (6)
  - DEHYDRATION [None]
  - DIARRHOEA [None]
  - LABILE BLOOD PRESSURE [None]
  - MALIGNANT NEOPLASM PROGRESSION [None]
  - RENAL FAILURE ACUTE [None]
  - SMALL INTESTINAL OBSTRUCTION [None]
